FAERS Safety Report 7625342-8 (Version None)
Quarter: 2011Q3

REPORT INFORMATION
  Report Type: 
  Country: None (occurrence: None)
  Receive Date: 20110721
  Receipt Date: 20110708
  Transmission Date: 20111222
  Serious: Yes (Disabling, Other)
  Sender: FDA-Public Use
  Company Number: DE-UCBSA-031353

PATIENT
  Sex: Female

DRUGS (6)
  1. PREDNISOLONE [Concomitant]
     Indication: ARTHRITIS
     Route: 048
  2. VIMPAT [Suspect]
     Indication: EPILEPSY
     Route: 048
     Dates: start: 20100701, end: 20110401
  3. METHOTREXATE [Concomitant]
     Indication: ARTHRITIS
     Dates: end: 20110101
  4. ARCOXIA [Concomitant]
     Indication: ARTHRITIS
     Route: 048
  5. VALPROIC ACID [Concomitant]
     Indication: EPILEPSY
     Route: 048
  6. KEPPRA [Concomitant]
     Indication: EPILEPSY
     Route: 048

REACTIONS (1)
  - OPTIC ATROPHY [None]
